FAERS Safety Report 13127401 (Version 1)
Quarter: 2017Q1

REPORT INFORMATION
  Report Type: Spontaneous
  Country: US (occurrence: US)
  Receive Date: 20170118
  Receipt Date: 20170118
  Transmission Date: 20170428
  Serious: Yes (Hospitalization)
  Sender: FDA-Public Use
  Company Number: US-ROCHE-1665457

PATIENT
  Age: 56 Year
  Sex: Female
  Weight: 82.1 kg

DRUGS (3)
  1. RITUXAN [Suspect]
     Active Substance: RITUXIMAB
     Indication: PRODUCT USED FOR UNKNOWN INDICATION
     Route: 042
  2. FOLIC ACID. [Concomitant]
     Active Substance: FOLIC ACID
     Dosage: TAKEN EVERY SINGLE DAY.
     Route: 048
     Dates: start: 2008
  3. METHOTREXATE. [Concomitant]
     Active Substance: METHOTREXATE
     Dosage: 6 TABLETS AT A TIME. ONLY TAKES ON SATURDAYS, TAKES 6 TABLETS AT A TIME. THIS DOSE WAS REDUCED?FROM
     Route: 048
     Dates: start: 2008

REACTIONS (4)
  - Somnolence [Unknown]
  - Pain [Not Recovered/Not Resolved]
  - Loss of consciousness [Unknown]
  - Malaise [Unknown]

NARRATIVE: CASE EVENT DATE: 20151102
